FAERS Safety Report 4824354-7 (Version None)
Quarter: 2005Q4

REPORT INFORMATION
  Report Type: 
  Country: None (occurrence: None)
  Receive Date: 20051108
  Receipt Date: 20051027
  Transmission Date: 20060501
  Serious: Yes (Other)
  Sender: FDA-Public Use
  Company Number: USA0510112060

PATIENT
  Sex: Female

DRUGS (3)
  1. CYMBALTA [Suspect]
     Dosage: 60 MG
  2. INSULIN [Concomitant]
  3. ZOCOR [Concomitant]

REACTIONS (2)
  - DIABETIC KETOACIDOSIS [None]
  - HEPATIC ENZYME INCREASED [None]
